FAERS Safety Report 9819175 (Version 1)
Quarter: 2014Q1

REPORT INFORMATION
  Report Type: Spontaneous
  Country: JP (occurrence: JP)
  Receive Date: 20140115
  Receipt Date: 20140115
  Transmission Date: 20141002
  Serious: Yes (Other)
  Sender: FDA-Public Use
  Company Number: JP-PFIZER INC-2014012536

PATIENT
  Age: 59 Year
  Sex: Male

DRUGS (3)
  1. CAMPTO [Suspect]
     Indication: SMALL CELL LUNG CANCER
     Dosage: UNK, ONCE A DAY
     Route: 041
  2. CISPLATIN [Concomitant]
     Dosage: UNK
  3. METOPIRON [Concomitant]
     Dosage: UNK

REACTIONS (2)
  - Cushing^s syndrome [Recovering/Resolving]
  - Pneumonia [Recovering/Resolving]
